FAERS Safety Report 8620143-6 (Version None)
Quarter: 2012Q3

REPORT INFORMATION
  Report Type: 
  Country: None (occurrence: None)
  Receive Date: 20120824
  Receipt Date: 20120816
  Transmission Date: 20120928
  Serious: Yes (Life-Threatening)
  Sender: FDA-Public Use
  Company Number: JP-GILEAD-2012-0054993

PATIENT
  Age: 60 Year
  Sex: Female

DRUGS (51)
  1. ALFAROL [Concomitant]
     Indication: PROPHYLAXIS
     Route: 048
  2. ALDACTONE [Concomitant]
     Route: 048
  3. GASMOTIN [Concomitant]
     Indication: GASTROOESOPHAGEAL REFLUX DISEASE
     Route: 048
  4. MUCOSTA [Concomitant]
     Route: 048
  5. CALCIUM CARBONATE [Concomitant]
     Indication: PROPHYLAXIS
     Route: 048
  6. PAXIL [Concomitant]
     Route: 048
  7. ALFAROL [Concomitant]
     Route: 048
  8. SULFAMETHOXAZOLE AND TRIMETHOPRIM [Concomitant]
     Route: 048
  9. ZOLPIDEM [Concomitant]
     Route: 048
  10. FUROSEMIDE [Concomitant]
     Route: 048
  11. ASPARTIC ACID [Concomitant]
     Indication: PROPHYLAXIS
     Route: 048
  12. WARFARIN SODIUM [Concomitant]
     Route: 048
  13. NEORAL [Concomitant]
     Route: 048
  14. PAXIL [Concomitant]
     Indication: DEPRESSION
     Route: 048
  15. RABEPRAZOLE SODIUM [Concomitant]
     Indication: PROPHYLAXIS
     Route: 048
  16. ALFAROL [Concomitant]
     Route: 048
  17. ZOLPIDEM [Concomitant]
     Indication: INSOMNIA
     Route: 048
  18. FUROSEMIDE [Concomitant]
     Route: 048
  19. FUROSEMIDE [Concomitant]
     Route: 048
  20. MAGLAX [Concomitant]
     Indication: PROPHYLAXIS
     Route: 048
  21. MAGLAX [Concomitant]
     Route: 048
  22. GASMOTIN [Concomitant]
     Route: 048
  23. POTASSIUM MAGNESIUM ASPARTATE [Concomitant]
     Indication: PROPHYLAXIS
     Route: 048
  24. RABEPRAZOLE SODIUM [Concomitant]
     Route: 048
  25. SULFAMETHOXAZOLE AND TRIMETHOPRIM [Concomitant]
     Route: 048
  26. ALDACTONE [Concomitant]
     Route: 048
  27. ASPARA K [Concomitant]
     Indication: PROPHYLAXIS
     Route: 048
  28. WARFARIN SODIUM [Concomitant]
     Indication: PULMONARY ARTERIAL HYPERTENSION
     Route: 048
  29. WARFARIN SODIUM [Concomitant]
     Route: 048
  30. GASMOTIN [Concomitant]
     Indication: GASTROINTESTINAL TRACT IRRITATION
     Route: 048
  31. AMOBAN [Concomitant]
     Route: 048
  32. AMOBAN [Concomitant]
     Route: 048
  33. LETAIRIS [Suspect]
     Dosage: 2.5MG PER DAY
     Route: 048
     Dates: start: 20110517, end: 20110523
  34. LETAIRIS [Suspect]
     Indication: PULMONARY ARTERIAL HYPERTENSION
     Dosage: 2.5 MG, QD
     Route: 048
     Dates: start: 20110517, end: 20110523
  35. NEORAL [Concomitant]
     Route: 048
  36. MUCOSTA [Concomitant]
     Indication: PROPHYLAXIS
     Route: 048
  37. MUCOSTA [Concomitant]
     Route: 048
  38. CALCIUM CARBONATE [Concomitant]
     Route: 048
  39. FUNGIZONE [Concomitant]
     Route: 048
  40. FUNGIZONE [Concomitant]
     Route: 048
  41. SULFAMETHOXAZOLE AND TRIMETHOPRIM [Concomitant]
     Indication: PROPHYLAXIS
     Route: 048
  42. NEORAL [Concomitant]
     Route: 048
  43. CALCIUM CARBONATE [Concomitant]
     Route: 048
  44. AMOBAN [Concomitant]
     Route: 048
  45. ALDACTONE [Concomitant]
     Route: 048
  46. CYCLOSPORINE [Concomitant]
     Indication: INTERSTITIAL LUNG DISEASE
     Dosage: 100MG PER DAY
     Route: 065
  47. PAXIL [Concomitant]
     Route: 048
  48. FUNGIZONE [Concomitant]
     Indication: INFECTION PROPHYLAXIS
     Route: 048
  49. RABEPRAZOLE SODIUM [Concomitant]
     Route: 048
  50. ZOLPIDEM [Concomitant]
     Route: 048
  51. MAGLAX [Concomitant]
     Route: 048

REACTIONS (1)
  - INTERSTITIAL LUNG DISEASE [None]
